FAERS Safety Report 4609166-1 (Version None)
Quarter: 2005Q1

REPORT INFORMATION
  Report Type: 
  Country: None (occurrence: None)
  Receive Date: 20050315
  Receipt Date: 20050310
  Transmission Date: 20050727
  Serious: Yes (Hospitalization)
  Sender: FDA-Public Use
  Company Number: FR-MERCK-0503FRA00035

PATIENT
  Age: 70 Year
  Sex: Male

DRUGS (8)
  1. ZETIA [Suspect]
     Indication: HYPERCHOLESTEROLAEMIA
     Route: 048
     Dates: start: 20050201, end: 20050201
  2. ATORVASTATIN CALCIUM [Concomitant]
     Indication: HYPERCHOLESTEROLAEMIA
     Route: 048
  3. METHYLPREDNISOLONE [Concomitant]
     Indication: RHEUMATOID ARTHRITIS
     Route: 048
  4. ASPIRIN LYSINE [Concomitant]
     Indication: THROMBOSIS PROPHYLAXIS
     Route: 048
  5. MOLSIDOMINE [Concomitant]
     Route: 048
  6. DILTIAZEM HYDROCHLORIDE [Concomitant]
     Route: 048
  7. METHOTREXATE [Concomitant]
     Indication: RHEUMATOID ARTHRITIS
     Route: 048
  8. FUROSEMIDE [Concomitant]
     Route: 048

REACTIONS (3)
  - COLITIS [None]
  - COLITIS ISCHAEMIC [None]
  - DIVERTICULUM INTESTINAL [None]
